FAERS Safety Report 4548161-8 (Version None)
Quarter: 2005Q1

REPORT INFORMATION
  Report Type: 
  Country: None (occurrence: None)
  Receive Date: 20050110
  Receipt Date: 20041230
  Transmission Date: 20050727
  Serious: Yes (Hospitalization)
  Sender: FDA-Public Use
  Company Number: FR-BRISTOL-MYERS SQUIBB COMPANY-12813077

PATIENT
  Age: 26 Year
  Sex: Female
  Weight: 45 kg

DRUGS (7)
  1. ENDOXAN [Suspect]
     Indication: B-CELL LYMPHOMA
     Dosage: 1300 MG DAY 1 AND DAY 2 (C1: 29-DEC, C-2: 13-JAN, C;3 28-JAN-2003) 100 MG 13-FEB-2003 (C4)
     Route: 042
     Dates: start: 20021229, end: 20030213
  2. IFOSFAMIDE [Suspect]
     Indication: B-CELL LYMPHOMA
     Dosage: 4 TREATMENTS (11-APR, 24-APR, 07-MAY, 04-JUN-2003)
     Dates: start: 20030411, end: 20030604
  3. IFOSFAMIDE [Suspect]
     Dosage: 4 TREATMENTS (11-APR, 24-APR, 07-MAY, 04-JUN-2003)
     Dates: start: 20030411, end: 20030604
  4. ADRIBLASTIN [Suspect]
     Indication: B-CELL LYMPHOMA
     Dosage: 100 MG DAY 1 (C1: 29-DEC, C-2: 13-JAN, C;3 28-JAN-2003) 85 MG 13-FEB-2003 (C4)
     Route: 042
     Dates: start: 20021229, end: 20030213
  5. ETOPOSIDE DAKOTA PHARM [Suspect]
     Indication: B-CELL LYMPHOMA
     Dosage: 600 MG DAY 1 (13-JAN, 28-JAN-03) 300 MG (11-APRE, 24-APR, 07-MAY, 04-JUL-03)
     Route: 042
     Dates: start: 20030113, end: 20030604
  6. MABTHERA [Suspect]
     Indication: B-CELL LYMPHOMA
     Route: 042
     Dates: start: 20030213, end: 20030213
  7. METHOTREXATE-TEVA [Suspect]
     Dosage: 4 TREATMENTS (17-MAR, 31-MAR, 26-JUN, 07-JUL-2003)
     Route: 042
     Dates: start: 20030317, end: 20030707

REACTIONS (4)
  - ACUTE MYELOID LEUKAEMIA [None]
  - PANCYTOPENIA [None]
  - TREATMENT RELATED SECONDARY MALIGNANCY [None]
  - UNEVALUABLE EVENT [None]
